FAERS Safety Report 14308098 (Version 2)
Quarter: 2018Q1

REPORT INFORMATION
  Report Type: Spontaneous
  Country: US (occurrence: US)
  Receive Date: 20171220
  Receipt Date: 20180105
  Transmission Date: 20180509
  Serious: Yes (Life-Threatening, Hospitalization, Disabling, Other)
  Sender: FDA-Public Use
  Company Number: US-009507513-1712USA009145

PATIENT
  Age: 54 Year
  Sex: Male

DRUGS (1)
  1. KEYTRUDA [Suspect]
     Active Substance: PEMBROLIZUMAB
     Indication: SQUAMOUS CELL CARCINOMA OF LUNG
     Dosage: UNK
     Route: 042
     Dates: end: 201712

REACTIONS (4)
  - Loss of consciousness [Not Recovered/Not Resolved]
  - Product use in unapproved indication [Unknown]
  - Neck pain [Not Recovered/Not Resolved]
  - Metabolic encephalopathy [Not Recovered/Not Resolved]

NARRATIVE: CASE EVENT DATE: 20171214
